FAERS Safety Report 5325528-1 (Version None)
Quarter: 2007Q2

REPORT INFORMATION
  Report Type: 
  Country: None (occurrence: None)
  Receive Date: 20070515
  Receipt Date: 20070503
  Transmission Date: 20071010
  Serious: Yes (Other)
  Sender: FDA-Public Use
  Company Number: US-PFIZER INC-2007036051

PATIENT

DRUGS (4)
  1. GEODON [Suspect]
  2. KLONOPIN [Suspect]
  3. AMBIEN [Suspect]
  4. DEPAKOTE [Suspect]

REACTIONS (1)
  - CREATININE RENAL CLEARANCE INCREASED [None]
